FAERS Safety Report 9702379 (Version 2)
Quarter: 2013Q4

REPORT INFORMATION
  Report Type: Spontaneous
  Country: US (occurrence: US)
  Receive Date: 20131121
  Receipt Date: 20131121
  Transmission Date: 20140711
  Serious: Yes (Death, Other)
  Sender: FDA-Public Use
  Company Number: US-PFIZER INC-HQWYE644223NOV04

PATIENT
  Age: 38 Year
  Sex: Female

DRUGS (29)
  1. EFFEXOR XR [Suspect]
     Indication: DEPRESSION
     Dosage: UNK
  2. GABAPENTIN [Suspect]
     Indication: PAIN
     Dosage: UNK
  3. ATENOLOL [Suspect]
     Indication: ILL-DEFINED DISORDER
     Dosage: UNK
  4. NEURONTIN [Suspect]
     Indication: PAIN
     Dosage: UNK
  5. VENLAFAXINE HCL [Suspect]
     Indication: DEPRESSION
     Dosage: UNK
  6. FENTANYL TTS [Suspect]
     Indication: PAIN
     Dosage: EVERY 1 DAYS
     Route: 062
     Dates: start: 20020820, end: 20040214
  7. CYCLOBENZAPRINE [Suspect]
     Indication: ILL-DEFINED DISORDER
     Dosage: UNK
     Dates: end: 20031218
  8. DURAGESIC [Suspect]
     Indication: PAIN
     Dosage: UNK
  9. WELLBUTRIN XL [Concomitant]
     Dosage: UNK
  10. CLONAZEPAM [Concomitant]
     Dosage: UNK
     Route: 065
     Dates: end: 20031218
  11. FLEXERIL [Concomitant]
     Route: 065
  12. DIAZEPAM [Concomitant]
     Dosage: UNK
     Dates: end: 20030324
  13. DIAZEPAM [Concomitant]
     Dosage: UNK
     Route: 065
     Dates: start: 20030325
  14. LORAZEPAM [Concomitant]
     Dosage: UNK
     Route: 065
     Dates: end: 20031217
  15. LORAZEPAM [Concomitant]
     Dosage: UNK
     Route: 065
     Dates: start: 20031218
  16. OXYCODONE HYDROCHLORIDE [Concomitant]
     Dosage: UNK
  17. TEMAZEPAM [Concomitant]
     Dosage: UNK
  18. TOPAMAX [Concomitant]
     Dosage: UNK
     Route: 065
  19. PSEUDOEPHEDRINE [Concomitant]
     Dosage: UNK
  20. MORPHINE [Concomitant]
     Dosage: UNK
     Dates: start: 20030722
  21. MORPHINE [Concomitant]
     Dosage: UNK
     Dates: start: 20030729, end: 20030804
  22. MORPHINE [Concomitant]
     Dosage: UNK
     Dates: start: 20030805, end: 20030811
  23. MORPHINE [Concomitant]
     Dosage: UNK
     Dates: start: 20030825, end: 20030827
  24. MORPHINE [Concomitant]
     Dosage: UNK
     Dates: start: 20031028
  25. BEXTRA [Concomitant]
     Dosage: UNK
     Dates: start: 20030825
  26. AMBIEN [Concomitant]
     Dosage: UNK
     Dates: start: 20031218
  27. TOPIRAMATE [Concomitant]
     Dosage: UNK
     Dates: start: 20040113
  28. ZOLPIDEM TARTRATE [Concomitant]
     Dosage: UNK
     Dates: start: 20031218
  29. BUPROPION [Concomitant]
     Dosage: UNK

REACTIONS (23)
  - Intentional overdose [Fatal]
  - Completed suicide [Fatal]
  - Cardio-respiratory arrest [Fatal]
  - Loss of consciousness [Fatal]
  - Haematemesis [Fatal]
  - Aspiration [Fatal]
  - Apnoea [Fatal]
  - Pulse absent [Fatal]
  - Toxicity to various agents [Fatal]
  - Wound infection [Unknown]
  - Neck pain [Unknown]
  - Pain in extremity [Unknown]
  - Muscle spasms [Unknown]
  - Insomnia [Unknown]
  - Headache [Unknown]
  - Precancerous cells present [Unknown]
  - Blood urine present [Unknown]
  - Fall [Unknown]
  - Petechiae [Recovered/Resolved]
  - Muscular weakness [Unknown]
  - Dizziness [Unknown]
  - Ulnar nerve palsy [Recovering/Resolving]
  - Rash [Recovered/Resolved]
